FAERS Safety Report 16839297 (Version 1)
Quarter: 2019Q3

REPORT INFORMATION
  Report Type: Spontaneous
  Country: US (occurrence: US)
  Receive Date: 20190731
  Receipt Date: 20190731
  Transmission Date: 20191005
  Serious: Yes (Hospitalization)
  Sender: FDA-Public Use
  Company Number: None

PATIENT
  Age: 78 Year
  Sex: Male
  Weight: 86.13 kg

DRUGS (3)
  1. CABAZITAXEL [Suspect]
     Active Substance: CABAZITAXEL
     Dates: end: 20190708
  2. PREDNISONE. [Suspect]
     Active Substance: PREDNISONE
     Dates: end: 20190719
  3. ABIRATERONE ACETATE. [Suspect]
     Active Substance: ABIRATERONE ACETATE
     Dates: end: 20190719

REACTIONS (3)
  - Hypokalaemia [None]
  - Urinary tract infection [None]
  - Febrile neutropenia [None]

NARRATIVE: CASE EVENT DATE: 20190720
